FAERS Safety Report 8558181-4 (Version None)
Quarter: 2012Q3

REPORT INFORMATION
  Report Type: 
  Country: None (occurrence: None)
  Receive Date: 20120801
  Receipt Date: 20120720
  Transmission Date: 20120928
  Serious: Yes (Life-Threatening, Hospitalization, Other)
  Sender: FDA-Public Use
  Company Number: JP-NAPPMUNDI-MAG-2012-0002232

PATIENT
  Sex: Male
  Weight: 50.7 kg

DRUGS (14)
  1. BUPRENORPHINE [Suspect]
     Dosage: 5 MCG, Q1H
     Route: 062
     Dates: start: 20120613, end: 20120628
  2. VITAMIN B12 [Concomitant]
     Dosage: 1500 MCG, DAILY
     Route: 048
  3. BUPRENORPHINE [Suspect]
     Indication: PAIN
     Dosage: 5 MCG, Q1H
     Route: 062
     Dates: start: 20120710
  4. MUCOSTA [Concomitant]
     Dosage: 200 MG, DAILY
     Route: 048
     Dates: start: 20120530
  5. LYRICA [Concomitant]
     Dosage: 100 MG, DAILY
     Route: 048
  6. OPALMON [Concomitant]
     Dosage: 15 MCG, DAILY
     Route: 048
     Dates: start: 20120530
  7. GASMOTIN [Concomitant]
     Dosage: 10 MG, DAILY
     Route: 048
  8. BUPRENORPHINE [Suspect]
     Indication: SPINAL COMPRESSION FRACTURE
     Dosage: 10 MCG, Q1H
     Route: 062
     Dates: start: 20120629, end: 20120709
  9. CALBLOCK [Concomitant]
     Dosage: 16 MG, DAILY
     Route: 048
     Dates: start: 20120530
  10. MOTILIUM [Concomitant]
     Dosage: 10 G, DAILY
     Route: 048
     Dates: start: 20120530
  11. OLMESARTAN MEDOXOMIL [Concomitant]
     Dosage: 20 G, DAILY
     Route: 048
     Dates: start: 20120530
  12. DOGMATYL [Concomitant]
     Dosage: 50 MG, DAILY
     Route: 048
     Dates: start: 20120530
  13. ARICEPT [Concomitant]
     Dosage: 5 MG, DAILY
     Route: 048
     Dates: start: 20120530
  14. MOHRUS L [Concomitant]
     Dosage: 1 DF, DAILY
     Route: 061
     Dates: start: 20120530

REACTIONS (4)
  - PNEUMONIA ASPIRATION [None]
  - HALLUCINATION [None]
  - ABNORMAL BEHAVIOUR [None]
  - DYSPHAGIA [None]
